FAERS Safety Report 19779779 (Version 1)
Quarter: 2021Q3

REPORT INFORMATION
  Report Type: Other
  Country: CN (occurrence: CN)
  Receive Date: 20210902
  Receipt Date: 20210902
  Transmission Date: 20211014
  Serious: Yes (Other)
  Sender: FDA-Public Use
  Company Number: CN-ROCHE-2899341

PATIENT
  Age: 28 Year
  Sex: Female

DRUGS (7)
  1. PEMETREXED. [Suspect]
     Active Substance: PEMETREXED
     Indication: LUNG ADENOCARCINOMA
     Dosage: ONE CYCLE
     Route: 065
  2. BEVACIZUMAB. [Suspect]
     Active Substance: BEVACIZUMAB
     Indication: LUNG ADENOCARCINOMA
     Dosage: ONE CYCLE
     Route: 065
  3. CABOZANTINIB [Concomitant]
     Active Substance: CABOZANTINIB
  4. ALECTINIB. [Suspect]
     Active Substance: ALECTINIB
     Indication: LUNG ADENOCARCINOMA
     Route: 065
  5. CRIZOTINIB [Concomitant]
     Active Substance: CRIZOTINIB
     Indication: LUNG ADENOCARCINOMA
  6. ALECTINIB. [Suspect]
     Active Substance: ALECTINIB
     Route: 065
     Dates: start: 20200814
  7. CISPLATIN. [Suspect]
     Active Substance: CISPLATIN
     Indication: LUNG ADENOCARCINOMA
     Dosage: ONE CYCLE
     Route: 065

REACTIONS (3)
  - Drug resistance [Unknown]
  - Neutropenia [Unknown]
  - Leukopenia [Unknown]
